FAERS Safety Report 12949733 (Version 1)
Quarter: 2016Q4

REPORT INFORMATION
  Report Type: Spontaneous
  Country: GB (occurrence: GB)
  Receive Date: 20161116
  Receipt Date: 20161116
  Transmission Date: 20170207
  Serious: Yes (Hospitalization, Other)
  Sender: FDA-Public Use
  Company Number: GB-MYLANLABS-2016M1049681

PATIENT

DRUGS (2)
  1. RAMIPRIL. [Concomitant]
     Active Substance: RAMIPRIL
     Indication: HYPERTENSION
     Dosage: UNK
  2. ACICLOVIR [Suspect]
     Active Substance: ACYCLOVIR
     Indication: HERPES ZOSTER
     Dosage: 800 MG, UNK
     Route: 048
     Dates: start: 20160204

REACTIONS (6)
  - Dyspnoea [Unknown]
  - Syncope [Unknown]
  - Small intestinal haemorrhage [Unknown]
  - Pallor [Unknown]
  - Melaena [Unknown]
  - Fatigue [Unknown]

NARRATIVE: CASE EVENT DATE: 201602
